FAERS Safety Report 9170824 (Version 1)
Quarter: 2013Q1

REPORT INFORMATION
  Report Type: Spontaneous
  Country: US (occurrence: None)
  Receive Date: 20130315
  Receipt Date: 20130315
  Transmission Date: 20140127
  Serious: Yes (Hospitalization)
  Sender: FDA-Public Use
  Company Number: None

PATIENT
  Age: 41 Year
  Sex: Male
  Weight: 84.1 kg

DRUGS (2)
  1. FLUPHENAZINE DECANOATE [Suspect]
     Dosage: Q 2 WEEKS INJECTION
     Route: 030
     Dates: start: 20130110
  2. FLUPHENAZINE [Suspect]
     Route: 048
     Dates: start: 20130110

REACTIONS (1)
  - Depressed mood [None]
